FAERS Safety Report 10691983 (Version 2)
Quarter: 2015Q1

REPORT INFORMATION
  Report Type: Report from Study
  Country: CA (occurrence: CA)
  Receive Date: 20150106
  Receipt Date: 20150121
  Transmission Date: 20150720
  Serious: Yes (Death, Other)
  Sender: FDA-Public Use
  Company Number: CA-AMGEN-CANSL2015000242

PATIENT
  Age: 68 Year
  Sex: Male

DRUGS (1)
  1. NPLATE [Suspect]
     Active Substance: ROMIPLOSTIM
     Indication: IMMUNE THROMBOCYTOPENIC PURPURA
     Dosage: 150 MUG, QWK
     Route: 058
     Dates: start: 20130501

REACTIONS (3)
  - Cerebrovascular accident [Fatal]
  - Myocardial infarction [Fatal]
  - Fall [Fatal]

NARRATIVE: CASE EVENT DATE: 20141217
